FAERS Safety Report 15350302 (Version 1)
Quarter: 2018Q3

REPORT INFORMATION
  Report Type: Spontaneous
  Country: IT (occurrence: IT)
  Receive Date: 20180905
  Receipt Date: 20180905
  Transmission Date: 20181010
  Serious: Yes (Other)
  Sender: FDA-Public Use
  Company Number: IT-JNJFOC-20180839627

PATIENT
  Age: 7 Year
  Sex: Female

DRUGS (2)
  1. CETIRIZINE [Suspect]
     Active Substance: CETIRIZINE HYDROCHLORIDE
     Route: 060
  2. CETIRIZINE [Suspect]
     Active Substance: CETIRIZINE HYDROCHLORIDE
     Indication: PRODUCT USED FOR UNKNOWN INDICATION
     Dosage: IN TOTAL
     Route: 060
     Dates: start: 20180810

REACTIONS (4)
  - Eye irritation [Unknown]
  - Vertigo [Unknown]
  - Arrhythmia [Unknown]
  - Vision blurred [Unknown]

NARRATIVE: CASE EVENT DATE: 20180810
